FAERS Safety Report 15789211 (Version 1)
Quarter: 2019Q1

REPORT INFORMATION
  Report Type: Spontaneous
  Country: US (occurrence: US)
  Receive Date: 20190104
  Receipt Date: 20190104
  Transmission Date: 20190417
  Serious: No
  Sender: FDA-Public Use
  Company Number: US-PFIZER INC-2019004271

PATIENT

DRUGS (1)
  1. METRONIDAZOLE. [Suspect]
     Active Substance: METRONIDAZOLE
     Dosage: 500 MG, UNK

REACTIONS (7)
  - Product taste abnormal [Unknown]
  - Condition aggravated [Unknown]
  - Dysgeusia [Unknown]
  - Poor quality product administered [Unknown]
  - Malaise [Unknown]
  - Dysphagia [Unknown]
  - Product size issue [Unknown]
